FAERS Safety Report 14685156 (Version 1)
Quarter: 2018Q1

REPORT INFORMATION
  Report Type: Spontaneous
  Country: US (occurrence: US)
  Receive Date: 20180327
  Receipt Date: 20180327
  Transmission Date: 20180509
  Serious: No
  Sender: FDA-Public Use
  Company Number: US-TEVA-2018-US-874842

PATIENT
  Age: 14 Year
  Sex: Female

DRUGS (1)
  1. METHOTREXATE. [Suspect]
     Active Substance: METHOTREXATE
     Indication: DERMATITIS ATOPIC
     Dosage: 7.5MG/WEEK
     Route: 065
     Dates: start: 20160607

REACTIONS (2)
  - Sensitivity of teeth [Unknown]
  - Muscular weakness [Unknown]
